FAERS Safety Report 7388413-X (Version None)
Quarter: 2011Q2

REPORT INFORMATION
  Report Type: 
  Country: None (occurrence: None)
  Receive Date: 20110401
  Receipt Date: 20110328
  Transmission Date: 20111010
  Serious: Yes (Life-Threatening)
  Sender: FDA-Public Use
  Company Number: PHHY2011TR25708

PATIENT
  Sex: Female

DRUGS (1)
  1. ACLASTA [Suspect]
     Indication: OSTEOPOROSIS
     Dosage: 5 MG,
     Route: 042
     Dates: start: 20110318

REACTIONS (5)
  - PYREXIA [None]
  - MUSCULAR WEAKNESS [None]
  - NASOPHARYNGITIS [None]
  - TREMOR [None]
  - ALTERED STATE OF CONSCIOUSNESS [None]
